FAERS Safety Report 21218075 (Version 1)
Quarter: 2022Q3

REPORT INFORMATION
  Report Type: Spontaneous
  Country: US (occurrence: None)
  Receive Date: 20220815
  Receipt Date: 20220815
  Transmission Date: 20221027
  Serious: Yes (Death)
  Sender: FDA-Public Use
  Company Number: None

PATIENT
  Sex: Male

DRUGS (8)
  1. REPATHA [Suspect]
     Active Substance: EVOLOCUMAB
     Indication: Hyperlipidaemia
     Dosage: 140MG/ML Q2WK SQ?
     Route: 058
     Dates: start: 20200109, end: 2022
  2. METHYLPREDNISOLONE [Concomitant]
     Active Substance: METHYLPREDNISOLONE
  3. ENTRESTO [Concomitant]
     Active Substance: SACUBITRIL\VALSARTAN
  4. REPATHA [Concomitant]
     Active Substance: EVOLOCUMAB
  5. ALPRAZOLAM [Concomitant]
     Active Substance: ALPRAZOLAM
  6. XTANDl 40MG [Concomitant]
  7. BICALUTAMIDE [Concomitant]
     Active Substance: BICALUTAMIDE
  8. LUPRON DEPOT [Concomitant]
     Active Substance: LEUPROLIDE ACETATE

REACTIONS (1)
  - Death [None]
